APPROVED DRUG PRODUCT: GENTAMICIN SULFATE
Active Ingredient: GENTAMICIN SULFATE
Strength: EQ 10MG BASE/ML
Dosage Form/Route: INJECTABLE;INJECTION
Application: A062366 | Product #002 | TE Code: AP
Applicant: FRESENIUS KABI USA LLC
Approved: Feb 6, 1986 | RLD: No | RS: Yes | Type: RX